FAERS Safety Report 25073757 (Version 1)
Quarter: 2025Q1

REPORT INFORMATION
  Report Type: Spontaneous
  Country: US (occurrence: None)
  Receive Date: 20250312
  Receipt Date: 20250312
  Transmission Date: 20250409
  Serious: Yes (unspecified)
  Sender: FDA-CTU
  Company Number: None

PATIENT
  Age: 30 Year
  Sex: Male
  Weight: 97.2 kg

DRUGS (5)
  1. TAMIFLU [Suspect]
     Active Substance: OSELTAMIVIR PHOSPHATE
     Indication: Influenza like illness
     Route: 048
     Dates: start: 20250302, end: 20250302
  2. INFLUENZA VIRUS VACCINE [Suspect]
     Active Substance: INFLUENZA VIRUS VACCINE
  3. ZOFRAN [Concomitant]
     Active Substance: ONDANSETRON HYDROCHLORIDE
     Dates: start: 20250302, end: 20250305
  4. morphine 2mg [Concomitant]
     Dates: start: 20250302, end: 20250302
  5. ZOSYN [Concomitant]
     Active Substance: PIPERACILLIN SODIUM\TAZOBACTAM SODIUM

REACTIONS (4)
  - Vomiting [None]
  - Nausea [None]
  - Diarrhoea [None]
  - Rash pruritic [None]

NARRATIVE: CASE EVENT DATE: 20250302
